FAERS Safety Report 26051425 (Version 1)
Quarter: 2025Q4

REPORT INFORMATION
  Report Type: Spontaneous
  Country: EU (occurrence: EU)
  Receive Date: 20251117
  Receipt Date: 20251117
  Transmission Date: 20260117
  Serious: Yes (Hospitalization, Other)
  Sender: BAXTER
  Company Number: EU-BAXTER-2025BAX024157

PATIENT
  Age: 73 Year
  Sex: Female
  Weight: 93.7 kg

DRUGS (9)
  1. DOXORUBICIN [Suspect]
     Active Substance: DOXORUBICIN
     Indication: Fallopian tube cancer
     Dosage: 33.8 MG, ON DAY 1 OF 28-DAY CYCLE, EVERY 28 DAYS
     Route: 042
     Dates: start: 20250520, end: 20251014
  2. MIRVETUXIMAB SORAVTANSINE [Suspect]
     Active Substance: MIRVETUXIMAB SORAVTANSINE
     Indication: Fallopian tube cancer
     Dosage: UNK
     Route: 065
  3. BEVACIZUMAB [Suspect]
     Active Substance: BEVACIZUMAB
     Indication: Fallopian tube cancer
     Dosage: 937 MG, EVERY 2 WK (DAYS 1 AND 15 OF 28 DAY CYCLE)
     Route: 042
     Dates: start: 20250520, end: 20251014
  4. CARBOPLATIN [Suspect]
     Active Substance: CARBOPLATIN
     Indication: Fallopian tube cancer
     Dosage: 414 MG, ON DAY 1 OF 28-DAY CYCLE, EVERY 28 DAYS
     Route: 042
     Dates: start: 20250520, end: 20251014
  5. METOPROLOL SUCCINATE [Concomitant]
     Active Substance: METOPROLOL SUCCINATE
     Indication: Hypertension
     Dosage: 100 MG, QD
     Route: 065
     Dates: start: 2014
  6. DIOSMIN\HESPERIDIN [Concomitant]
     Active Substance: DIOSMIN\HESPERIDIN
     Indication: Peripheral venous disease
     Dosage: 1000 MG, QD
     Route: 065
     Dates: start: 2014
  7. CIPRALEX [Concomitant]
     Active Substance: ESCITALOPRAM OXALATE
     Indication: Depression
     Dosage: 10 MG, QD
     Route: 065
     Dates: start: 2023
  8. TELMISARTAN [Concomitant]
     Active Substance: TELMISARTAN
     Indication: Hypertension
     Dosage: 40 MG, QD
     Route: 065
     Dates: start: 2014
  9. FENOTEROL HYDROBROMIDE\IPRATROPIUM BROMIDE [Concomitant]
     Active Substance: FENOTEROL HYDROBROMIDE\IPRATROPIUM BROMIDE
     Indication: Dyspnoea
     Dosage: 0.02MG/0.05MG - 2 INHALATIONS, 3/DAYS
     Route: 065
     Dates: start: 20250705

REACTIONS (1)
  - Deep vein thrombosis [Recovered/Resolved]

NARRATIVE: CASE EVENT DATE: 20251107
